FAERS Safety Report 7639420-0 (Version None)
Quarter: 2011Q3

REPORT INFORMATION
  Report Type: 
  Country: None (occurrence: None)
  Receive Date: 20110727
  Receipt Date: 20110708
  Transmission Date: 20111222
  Serious: Yes (Other)
  Sender: FDA-Public Use
  Company Number: US-GLAXOSMITHKLINE-A0749340A

PATIENT
  Age: 70 Year
  Sex: Female
  Weight: 68.2 kg

DRUGS (5)
  1. METFORMIN HCL [Concomitant]
  2. LIPITOR [Concomitant]
  3. AVANDIA [Suspect]
     Indication: DIABETES MELLITUS
     Dosage: 8MG PER DAY
     Route: 048
     Dates: start: 20030101, end: 20060101
  4. ACTOS [Concomitant]
  5. ALLOPURINOL [Concomitant]

REACTIONS (3)
  - MYOCARDIAL INFARCTION [None]
  - HEART INJURY [None]
  - CARDIAC FAILURE CONGESTIVE [None]
